FAERS Safety Report 6517466-3 (Version None)
Quarter: 2009Q4

REPORT INFORMATION
  Report Type: 
  Country: None (occurrence: None)
  Receive Date: 20091224
  Receipt Date: 20091218
  Transmission Date: 20100525
  Serious: Yes (Hospitalization)
  Sender: FDA-Public Use
  Company Number: GB-RANBAXY-2008RR-14400

PATIENT
  Age: 47 Year
  Sex: Female

DRUGS (9)
  1. CO-DYDRAMOL [Suspect]
     Dosage: UNK MG, UNK
  2. ABILIFY [Suspect]
     Indication: PSYCHOTIC DISORDER
     Dosage: 10 MG, UNK
  3. ABILIFY [Suspect]
     Dosage: 15 MG, QD
  4. RISPERIDONE [Concomitant]
     Dosage: 4 MG, UNK
  5. ARIPIPRAZOLE [Concomitant]
     Indication: SCHIZOAFFECTIVE DISORDER
     Dosage: 20 MG, UNK
     Route: 048
  6. ARIPIPRAZOLE [Concomitant]
     Dosage: 15 MG, UNK
  7. ACETYLSALICYLIC ACID [Concomitant]
     Dosage: 75 MG, QD
  8. METFORMIN HCL [Concomitant]
     Dosage: 500 MG, QD
  9. SIMVASTATIN [Concomitant]
     Dosage: 40 MG, QD

REACTIONS (3)
  - DISEASE RECURRENCE [None]
  - OVERDOSE [None]
  - SEDATION [None]
